FAERS Safety Report 7949058-3 (Version None)
Quarter: 2011Q4

REPORT INFORMATION
  Report Type: 
  Country: None (occurrence: None)
  Receive Date: 20111130
  Receipt Date: 20111004
  Transmission Date: 20120403
  Serious: No
  Sender: FDA-Public Use
  Company Number: US-BRISTOL-MYERS SQUIBB COMPANY-16130106

PATIENT
  Age: 50 Year
  Sex: Female

DRUGS (2)
  1. KOMBIGLYZE XR [Suspect]
  2. METFORMIN HCL [Suspect]

REACTIONS (3)
  - COLITIS [None]
  - RASH [None]
  - DIARRHOEA [None]
